FAERS Safety Report 16232810 (Version 1)
Quarter: 2019Q2

REPORT INFORMATION
  Report Type: Spontaneous
  Country: US (occurrence: US)
  Receive Date: 20190423
  Receipt Date: 20190423
  Transmission Date: 20190711
  Serious: Yes (Life-Threatening, Hospitalization)
  Sender: FDA-Public Use
  Company Number: None

PATIENT
  Age: 33 Year
  Sex: Female
  Weight: 99 kg

DRUGS (1)
  1. FERAHEME [Suspect]
     Active Substance: FERUMOXYTOL NON-STOICHIOMETRIC MAGNETITE
     Indication: BLOOD IRON DECREASED
     Dosage: ?          QUANTITY:1 INTRAVENOUS;OTHER FREQUENCY:3-8DAYS;?
     Route: 042
     Dates: start: 20190416, end: 20190423

REACTIONS (9)
  - Loss of consciousness [None]
  - Erythema [None]
  - Respiratory rate increased [None]
  - Chest discomfort [None]
  - Flank pain [None]
  - Swelling [None]
  - Infusion related reaction [None]
  - Visual impairment [None]
  - Hyperhidrosis [None]

NARRATIVE: CASE EVENT DATE: 20190423
